FAERS Safety Report 9387171 (Version 6)
Quarter: 2014Q2

REPORT INFORMATION
  Report Type: Report from Study
  Country: US (occurrence: US)
  Receive Date: 20130708
  Receipt Date: 20140523
  Transmission Date: 20141212
  Serious: Yes (Life-Threatening, Hospitalization, Other)
  Sender: FDA-Public Use
  Company Number: US-ALEXION-A201301546

PATIENT
  Sex: 0

DRUGS (1)
  1. SOLIRIS [Suspect]
     Indication: HAEMOLYTIC URAEMIC SYNDROME
     Dosage: UNK
     Route: 042
     Dates: start: 20130623

REACTIONS (7)
  - Cardio-respiratory arrest [Unknown]
  - Renal failure [Unknown]
  - Brain injury [Unknown]
  - Dilatation ventricular [Unknown]
  - Pulmonary embolism [Unknown]
  - Thrombotic microangiopathy [Not Recovered/Not Resolved]
  - Hypotension [Unknown]
